FAERS Safety Report 16146161 (Version 2)
Quarter: 2019Q2

REPORT INFORMATION
  Report Type: Spontaneous
  Country: US (occurrence: US)
  Receive Date: 20190402
  Receipt Date: 20190402
  Transmission Date: 20190711
  Serious: No
  Sender: FDA-Public Use
  Company Number: US-TEVA-2019-US-1024417

PATIENT
  Age: 16 Month
  Sex: Female

DRUGS (1)
  1. AMOXICILLIN. [Suspect]
     Active Substance: AMOXICILLIN
     Indication: INFLUENZA
     Route: 065

REACTIONS (4)
  - Fungal infection [Unknown]
  - Crying [Unknown]
  - Pruritus genital [Unknown]
  - Middle insomnia [Unknown]
